FAERS Safety Report 5764493-X (Version None)
Quarter: 2008Q2

REPORT INFORMATION
  Report Type: 
  Country: None (occurrence: None)
  Receive Date: 20080610
  Receipt Date: 20080530
  Transmission Date: 20081010
  Serious: Yes (Death)
  Sender: FDA-Public Use
  Company Number: DE-PFIZER INC-2008046593

PATIENT
  Sex: Female
  Weight: 96 kg

DRUGS (12)
  1. SOMAVERT [Suspect]
     Indication: ACROMEGALY
     Dosage: DAILY DOSE:30MG-FREQ:DAILY
     Dates: start: 20061027, end: 20080530
  2. METHIONINE [Concomitant]
  3. PANTOPRAZOLE SODIUM [Concomitant]
  4. CALCIUM [Concomitant]
  5. VIGANTOLETTEN ^BAYER^ [Concomitant]
  6. FRAGMIN [Concomitant]
  7. LEVOTHYROXINE SODIUM [Concomitant]
     Indication: BLOOD THYROID STIMULATING HORMONE DECREASED
  8. HYDROCORTISONE [Concomitant]
     Indication: BLOOD CORTICOTROPHIN DECREASED
  9. ACTONEL [Concomitant]
  10. SPIRIVA [Concomitant]
     Indication: RESPIRATORY DISORDER
  11. BEROTEC [Concomitant]
     Indication: RESPIRATORY DISORDER
  12. ACTRAPHANE HM [Concomitant]

REACTIONS (1)
  - DEATH [None]
